FAERS Safety Report 17648711 (Version 1)
Quarter: 2020Q2

REPORT INFORMATION
  Report Type: Spontaneous
  Country: US (occurrence: US)
  Receive Date: 20200409
  Receipt Date: 20200409
  Transmission Date: 20200713
  Serious: No
  Sender: FDA-Public Use
  Company Number: NVSC2020US095526

PATIENT
  Age: 77 Year
  Sex: Male

DRUGS (1)
  1. SIGNIFOR LAR [Suspect]
     Active Substance: PASIREOTIDE PAMOATE
     Indication: CUSHING^S SYNDROME
     Dosage: 30 MG, QMO
     Route: 065

REACTIONS (3)
  - Diplopia [Unknown]
  - Fatigue [Unknown]
  - Arthralgia [Unknown]
